FAERS Safety Report 7588850 (Version 2)
Quarter: 2013Q1

REPORT INFORMATION
  Report Type: Spontaneous
  Country: AR (occurrence: AR)
  Receive Date: 20100916
  Receipt Date: 20130314
  Transmission Date: 20140127
  Serious: Yes (Death)
  Sender: FDA-Public Use
  Company Number: AR-GENZYME-CLOF-1001197

PATIENT
  Age: 17 Year
  Sex: Male

DRUGS (9)
  1. EVOLTRA [Suspect]
     Indication: NON-HODGKIN^S LYMPHOMA
     Dosage: 40 MG/M2, QD (CYCLE 1)
     Route: 065
  2. EVOLTRA [Suspect]
     Dosage: 40 MG/M2, QD (CYCLE 2)
     Route: 065
  3. EVOLTRA [Suspect]
     Dosage: 40 MG/M2, QD (CYCLE 3)
     Route: 065
  4. EVOLTRA [Suspect]
     Dosage: UNK (CYCLE 4)
     Route: 065
  5. CYTARABINE [Suspect]
     Indication: NON-HODGKIN^S LYMPHOMA
     Dosage: UNK (CYCLE 1)
     Route: 065
  6. CYTARABINE [Suspect]
     Dosage: UNK (CYCLE 2)
     Route: 065
  7. CYTARABINE [Suspect]
     Dosage: UNK (CYCLE 3)
     Route: 065
  8. CYCLOPHOSPHAMIDE [Suspect]
     Indication: NON-HODGKIN^S LYMPHOMA
     Dosage: UNK (CYCLE1)
     Route: 065
  9. ETOPOSIDE [Suspect]
     Indication: NON-HODGKIN^S LYMPHOMA
     Dosage: UNK (CYCLE 1)
     Route: 065

REACTIONS (1)
  - Non-Hodgkin^s lymphoma [Fatal]
